FAERS Safety Report 15167900 (Version 2)
Quarter: 2023Q2

REPORT INFORMATION
  Report Type: Report from Study
  Country: DE (occurrence: DE)
  Receive Date: 20180719
  Receipt Date: 20230411
  Transmission Date: 20230722
  Serious: Yes (Other)
  Sender: FDA-Public Use
  Company Number: DE-002147023-PHHY2018DE014742

PATIENT
  Age: 51 Year
  Sex: Male

DRUGS (8)
  1. DICLOFENAC [Suspect]
     Active Substance: DICLOFENAC
     Indication: Product used for unknown indication
     Dosage: UNK
     Route: 062
  2. TERIPARATIDE ACETATE [Suspect]
     Active Substance: TERIPARATIDE ACETATE
     Indication: Osteoporosis
     Dosage: UNK (START DATE: 10-JUN-2016)
     Route: 058
     Dates: end: 20160626
  3. TERIPARATIDE ACETATE [Suspect]
     Active Substance: TERIPARATIDE ACETATE
     Dosage: 1 DOSAGE FORM, QD (1 DF, QD)
     Route: 058
  4. TERIPARATIDE ACETATE [Suspect]
     Active Substance: TERIPARATIDE ACETATE
     Dosage: UNK (QD)
     Route: 058
  5. CALCIUM [Concomitant]
     Active Substance: CALCIUM
     Indication: Product used for unknown indication
     Dosage: UNK
     Route: 065
  6. CALCIUM [Concomitant]
     Active Substance: CALCIUM
     Dosage: UNK
     Route: 065
  7. LEFLUNOMIDE [Concomitant]
     Active Substance: LEFLUNOMIDE
     Indication: Rheumatoid arthritis
     Dosage: 1 DOSAGE FORM, QD (1 DF, QD)
     Route: 065
  8. LEFLUNOMIDE [Concomitant]
     Active Substance: LEFLUNOMIDE
     Dosage: UNK
     Route: 065

REACTIONS (14)
  - Rheumatoid arthritis [Not Recovered/Not Resolved]
  - Spinal fracture [Recovered/Resolved]
  - Renal pain [Recovering/Resolving]
  - Hepatic pain [Recovering/Resolving]
  - Bronchitis [Recovered/Resolved]
  - Haemorrhoids thrombosed [Recovering/Resolving]
  - Peripheral coldness [Not Recovered/Not Resolved]
  - Hypoaesthesia [Not Recovered/Not Resolved]
  - Pain in extremity [Recovering/Resolving]
  - Inflammation [Recovering/Resolving]
  - Sleep disorder [Not Recovered/Not Resolved]
  - Mobility decreased [Not Recovered/Not Resolved]
  - Abdominal pain [Recovered/Resolved]
  - Diarrhoea [Recovered/Resolved]

NARRATIVE: CASE EVENT DATE: 20160601
